FAERS Safety Report 20635877 (Version 1)
Quarter: 2022Q1

REPORT INFORMATION
  Report Type: Spontaneous
  Country: US (occurrence: None)
  Receive Date: 20220324
  Receipt Date: 20220324
  Transmission Date: 20220423
  Serious: No
  Sender: FDA-Public Use
  Company Number: None

PATIENT
  Age: 49 Year
  Sex: Female

DRUGS (1)
  1. GLATIRAMER ACETATE [Suspect]
     Active Substance: GLATIRAMER ACETATE
     Dosage: OTHER FREQUENCY : OTHER;?
     Route: 058
     Dates: start: 2002

REACTIONS (8)
  - Flushing [None]
  - Dizziness [None]
  - Erythema [None]
  - Vomiting [None]
  - Nausea [None]
  - Diarrhoea [None]
  - Lip swelling [None]
  - Dyspnoea [None]

NARRATIVE: CASE EVENT DATE: 20220322
